FAERS Safety Report 17633478 (Version 1)
Quarter: 2020Q2

REPORT INFORMATION
  Report Type: Spontaneous
  Country: HU (occurrence: HU)
  Receive Date: 20200406
  Receipt Date: 20200406
  Transmission Date: 20200713
  Serious: Yes (Other)
  Sender: FDA-Public Use
  Company Number: NVSC2020HU092916

PATIENT
  Age: 55 Year
  Sex: Male

DRUGS (10)
  1. MAXIDEX [Suspect]
     Active Substance: DEXAMETHASONE
     Indication: OEDEMA
     Dosage: 1 DRP, QH
     Route: 065
  2. CIPROFLOXACIN. [Suspect]
     Active Substance: CIPROFLOXACIN
     Indication: PRODUCT USED FOR UNKNOWN INDICATION
     Dosage: 2 DF, QD (2X1 TABLET)
     Route: 048
  3. CICLOPLEGICEDOL [Concomitant]
     Indication: PRODUCT USED FOR UNKNOWN INDICATION
     Dosage: 3 DRP, QD
     Route: 065
  4. DEXA-RATIOPHARM [Suspect]
     Active Substance: DEXAMETHASONE SODIUM PHOSPHATE
     Indication: OEDEMA
     Dosage: FOR BOTH EYES
     Route: 057
  5. OFTAQUIX [Suspect]
     Active Substance: LEVOFLOXACIN
     Indication: OEDEMA
     Dosage: 5 X 1 DRP
     Route: 065
  6. OFTAQUIX [Suspect]
     Active Substance: LEVOFLOXACIN
     Dosage: 5 DF
     Route: 061
  7. ATROPIN [Suspect]
     Active Substance: ATROPINE
     Indication: OEDEMA
     Dosage: 3 X 1 DRP
     Route: 065
  8. CIPROFLOXACIN. [Suspect]
     Active Substance: CIPROFLOXACIN
     Dosage: 3 X 400 MG, QD
     Route: 065
  9. FORTUM [Concomitant]
     Active Substance: CEFTAZIDIME
     Indication: PRODUCT USED FOR UNKNOWN INDICATION
     Dosage: UNK
     Route: 065
  10. MAXIDEX [Suspect]
     Active Substance: DEXAMETHASONE
     Dosage: 5 DF
     Route: 065

REACTIONS (3)
  - Endophthalmitis [Unknown]
  - Choroidal detachment [Not Recovered/Not Resolved]
  - Hypopyon [Not Recovered/Not Resolved]
